FAERS Safety Report 7671136-7 (Version None)
Quarter: 2011Q3

REPORT INFORMATION
  Report Type: 
  Country: None (occurrence: None)
  Receive Date: 20110808
  Receipt Date: 20110808
  Transmission Date: 20111222
  Serious: Yes (Hospitalization)
  Sender: FDA-Public Use
  Company Number: None

PATIENT
  Age: 32 Year
  Sex: Female
  Weight: 54.0234 kg

DRUGS (2)
  1. OXALIPLATIN [Suspect]
     Indication: GASTRIC CANCER
     Dosage: 85MG/M2 EVERY 2 WKS
     Dates: start: 20110106, end: 20110722
  2. LEUCOVORIN CALCIUM [Suspect]
     Indication: GASTRIC CANCER
     Dosage: 400MG/M2 EVERY 2 WKS
     Dates: start: 20110106, end: 20110722

REACTIONS (9)
  - FOOD INTOLERANCE [None]
  - VOMITING [None]
  - OBSTRUCTION GASTRIC [None]
  - NEOPLASM PROGRESSION [None]
  - GASTRIC CANCER [None]
  - ABDOMINAL PAIN [None]
  - CONDITION AGGRAVATED [None]
  - FEELING ABNORMAL [None]
  - NAUSEA [None]
